FAERS Safety Report 7919415-X (Version None)
Quarter: 2011Q4

REPORT INFORMATION
  Report Type: 
  Country: None (occurrence: None)
  Receive Date: 20111115
  Receipt Date: 20111115
  Transmission Date: 20120403
  Serious: No
  Sender: FDA-Public Use
  Company Number: None

PATIENT
  Age: 58 Year
  Sex: Female
  Weight: 103.1 kg

DRUGS (2)
  1. IODIXANOL [Suspect]
     Dosage: 100 ML ONCE IV
     Route: 042
     Dates: start: 20110801, end: 20110801
  2. IOHEXOL [Suspect]
     Indication: COMPUTERISED TOMOGRAM
     Dates: start: 20110801, end: 20110801

REACTIONS (3)
  - URTICARIA [None]
  - RASH [None]
  - PRURITUS [None]
